FAERS Safety Report 22005977 (Version 10)
Quarter: 2023Q2

REPORT INFORMATION
  Report Type: Spontaneous
  Country: US (occurrence: US)
  Receive Date: 20230217
  Receipt Date: 20230628
  Transmission Date: 20230722
  Serious: No
  Sender: FDA-Public Use
  Company Number: US-PFIZER INC-PV202300028703

PATIENT
  Age: 14 Year
  Sex: Male
  Weight: 48.988 kg

DRUGS (2)
  1. GENOTROPIN [Suspect]
     Active Substance: SOMATROPIN
     Dosage: 1.8 MG, DAILY
     Dates: start: 202302
  2. GENOTROPIN [Suspect]
     Active Substance: SOMATROPIN
     Dosage: UNK

REACTIONS (6)
  - Drug dose omission by device [Unknown]
  - Wrong technique in device usage process [Unknown]
  - Device mechanical issue [Unknown]
  - Needle issue [Unknown]
  - Device breakage [Unknown]
  - Poor quality device used [Unknown]

NARRATIVE: CASE EVENT DATE: 20230101
